FAERS Safety Report 5437824-8 (Version None)
Quarter: 2007Q3

REPORT INFORMATION
  Report Type: 
  Country: None (occurrence: None)
  Receive Date: 20070831
  Receipt Date: 20070821
  Transmission Date: 20080115
  Serious: Yes (Hospitalization)
  Sender: FDA-Public Use
  Company Number: JP-ASTRAZENECA-2007SE00269

PATIENT
  Age: 45 Year
  Sex: Male

DRUGS (2)
  1. CANDESARTAN CILEXETIL [Suspect]
     Indication: HYPERTENSION
     Route: 048
     Dates: start: 20061201, end: 20061231
  2. ALLOPURINOL [Concomitant]
     Route: 048
     Dates: start: 20061201

REACTIONS (2)
  - HYPOTENSION [None]
  - RENAL IMPAIRMENT [None]
